FAERS Safety Report 6272500-3 (Version None)
Quarter: 2009Q3

REPORT INFORMATION
  Report Type: 
  Country: None (occurrence: None)
  Receive Date: 20090717
  Receipt Date: 20090708
  Transmission Date: 20100115
  Serious: Yes (Other)
  Sender: FDA-Public Use
  Company Number: US-PURDUE-USA-2009-0036840

PATIENT
  Sex: Female

DRUGS (2)
  1. DILAUDID [Suspect]
     Indication: PAIN
     Dosage: 4 MG, SEE TEXT
     Route: 048
     Dates: start: 20000101
  2. PEPCID [Concomitant]
     Indication: ABDOMINAL DISCOMFORT
     Dosage: 1 TABLET, PRN
     Route: 048

REACTIONS (16)
  - ABDOMINAL PAIN UPPER [None]
  - BLADDER SPASM [None]
  - BURNING SENSATION [None]
  - CEREBROVASCULAR ACCIDENT [None]
  - DRUG INEFFECTIVE [None]
  - DRUG WITHDRAWAL SYNDROME [None]
  - DYSURIA [None]
  - EYE PAIN [None]
  - FEELING ABNORMAL [None]
  - GASTROINTESTINAL PAIN [None]
  - HEADACHE [None]
  - MALAISE [None]
  - MUSCLE SPASMS [None]
  - PRODUCT FRIABLE [None]
  - SUDDEN ONSET OF SLEEP [None]
  - THROAT IRRITATION [None]
